FAERS Safety Report 25493987 (Version 2)
Quarter: 2025Q3

REPORT INFORMATION
  Report Type: Spontaneous
  Country: US (occurrence: US)
  Receive Date: 20250630
  Receipt Date: 20250908
  Transmission Date: 20251021
  Serious: Yes (Hospitalization)
  Sender: OTSUKA
  Company Number: US-MMM-Otsuka-572TUFGO

PATIENT
  Sex: Male
  Weight: 54.42 kg

DRUGS (3)
  1. REXULTI [Suspect]
     Active Substance: BREXPIPRAZOLE
     Indication: Agitation
     Route: 065
  2. REXULTI [Suspect]
     Active Substance: BREXPIPRAZOLE
     Indication: Anger
     Route: 065
  3. REXULTI [Suspect]
     Active Substance: BREXPIPRAZOLE
     Indication: Dementia
     Dosage: 2 MG, QD (ABOUT 6 TO 8 WEEKS AGO)
     Route: 048
     Dates: end: 20250621

REACTIONS (10)
  - Cardiac failure congestive [Unknown]
  - Blood pressure abnormal [Unknown]
  - Abnormal behaviour [Unknown]
  - Decreased appetite [Unknown]
  - Gait inability [Recovered/Resolved]
  - Dyskinesia [Recovered/Resolved]
  - Fatigue [Unknown]
  - Somnolence [Unknown]
  - Drug ineffective [Unknown]
  - Product use in unapproved indication [Unknown]
